FAERS Safety Report 12780708 (Version 1)
Quarter: 2016Q3

REPORT INFORMATION
  Report Type: Spontaneous
  Country: SE (occurrence: SE)
  Receive Date: 20160926
  Receipt Date: 20160926
  Transmission Date: 20161109
  Serious: Yes (Other)
  Sender: FDA-Public Use
  Company Number: SE-009507513-1608SWE007747

PATIENT
  Sex: Female
  Weight: 58 kg

DRUGS (4)
  1. KALCIPOS D [Concomitant]
     Indication: OSTEOPOROSIS
     Dosage: UNK
  2. IMOVANE [Concomitant]
     Active Substance: ZOPICLONE
     Indication: SLEEP DISORDER
     Dosage: UNK
  3. KEYTRUDA [Suspect]
     Active Substance: PEMBROLIZUMAB
     Indication: MALIGNANT MELANOMA
     Dosage: 2 MG/KG BODYWEIGHT, EVERY THIRD WEEK
     Route: 042
     Dates: start: 20150303, end: 20160506
  4. OMEPRAZOLE. [Concomitant]
     Active Substance: OMEPRAZOLE
     Indication: GASTRITIS
     Dosage: UNK

REACTIONS (2)
  - Polymyalgia rheumatica [Recovering/Resolving]
  - Pruritus [Unknown]
